FAERS Safety Report 18693240 (Version 1)
Quarter: 2021Q1

REPORT INFORMATION
  Report Type: Spontaneous
  Country: US (occurrence: US)
  Receive Date: 20210104
  Receipt Date: 20210104
  Transmission Date: 20210419
  Serious: No
  Sender: FDA-Public Use
  Company Number: US-AUROBINDO-AUR-APL-2020-015981

PATIENT
  Age: 18 Year
  Sex: Female
  Weight: 89 kg

DRUGS (1)
  1. AUBRA EQ [Suspect]
     Active Substance: ETHINYL ESTRADIOL\LEVONORGESTREL
     Indication: CONTRACEPTION
     Dosage: 1 DOSAGE FORM, ONCE A DAY IN THE  EVENING
     Route: 048
     Dates: start: 20200310

REACTIONS (1)
  - Menstruation irregular [Not Recovered/Not Resolved]
